FAERS Safety Report 8041290-6 (Version None)
Quarter: 2012Q1

REPORT INFORMATION
  Report Type: 
  Country: None (occurrence: None)
  Receive Date: 20120112
  Receipt Date: 20120109
  Transmission Date: 20120608
  Serious: Yes (Other)
  Sender: FDA-Public Use
  Company Number: US-PFIZER INC-2011269762

PATIENT
  Sex: Female
  Weight: 77.098 kg

DRUGS (5)
  1. ESTRATEST [Concomitant]
     Dosage: UNK
  2. CELEBREX [Suspect]
     Indication: OSTEOARTHRITIS
  3. PROTONIX [Concomitant]
     Dosage: UNK
  4. CELEBREX [Suspect]
     Indication: ARTHRALGIA
     Dosage: 20 MG, 1X/DAY
     Route: 048
     Dates: start: 20111020, end: 20111102
  5. ZOLOFT [Concomitant]
     Dosage: UNK

REACTIONS (2)
  - RASH [None]
  - URTICARIA [None]
